FAERS Safety Report 24281665 (Version 2)
Quarter: 2024Q3

REPORT INFORMATION
  Report Type: Spontaneous
  Country: US (occurrence: US)
  Receive Date: 20240904
  Receipt Date: 20240905
  Transmission Date: 20241017
  Serious: No
  Sender: SANOFI AVENTIS
  Company Number: US-SANOFI-02191727

PATIENT
  Age: 23 Year
  Sex: Female

DRUGS (1)
  1. FERRLECIT [Suspect]
     Active Substance: SODIUM FERRIC GLUCONATE COMPLEX
     Indication: Iron deficiency anaemia
     Dosage: 125 MG

REACTIONS (5)
  - Swelling [Unknown]
  - Urticaria [Unknown]
  - Back pain [Unknown]
  - Dyspnoea [Unknown]
  - Off label use [Unknown]
